FAERS Safety Report 17793283 (Version 4)
Quarter: 2021Q3

REPORT INFORMATION
  Report Type: Spontaneous
  Country: CA (occurrence: CA)
  Receive Date: 20200515
  Receipt Date: 20210906
  Transmission Date: 20211014
  Serious: Yes (Death, Other)
  Sender: FDA-Public Use
  Company Number: CA-PFIZER INC-2020056814

PATIENT
  Age: 68 Year
  Sex: Female

DRUGS (3)
  1. SHINGRIX [Concomitant]
     Active Substance: RECOMBINANT VARICELLA ZOSTER VIRUS (VZV) GLYCOPROTEIN E
     Dosage: UNK
     Route: 030
     Dates: start: 20200512
  2. XELJANZ [Suspect]
     Active Substance: TOFACITINIB CITRATE
     Indication: PSORIATIC ARTHROPATHY
     Dosage: 5 MG, 2X/DAY
     Route: 048
     Dates: start: 20200219
  3. SHINGRIX [Concomitant]
     Active Substance: RECOMBINANT VARICELLA ZOSTER VIRUS (VZV) GLYCOPROTEIN E
     Dosage: 0.5 MG
     Dates: start: 20200205, end: 2020

REACTIONS (5)
  - Pain [Not Recovered/Not Resolved]
  - Blood pressure increased [Unknown]
  - Urine albumin/creatinine ratio increased [Unknown]
  - Death [Fatal]
  - Joint swelling [Not Recovered/Not Resolved]

NARRATIVE: CASE EVENT DATE: 20200512
